FAERS Safety Report 12979626 (Version 1)
Quarter: 2016Q4

REPORT INFORMATION
  Report Type: Spontaneous
  Country: GB (occurrence: GB)
  Receive Date: 20161128
  Receipt Date: 20161128
  Transmission Date: 20170207
  Serious: Yes (Other)
  Sender: FDA-Public Use
  Company Number: GB-PFIZER INC-2016546586

PATIENT
  Age: 74 Year
  Sex: Female

DRUGS (1)
  1. NITROGLYCERIN. [Suspect]
     Active Substance: NITROGLYCERIN
     Dosage: 5 ML, CYCLIC (5ML PER HOUR)
     Route: 042

REACTIONS (7)
  - Vision blurred [Unknown]
  - Blood pressure decreased [Unknown]
  - Malaise [Unknown]
  - Nausea [Unknown]
  - Feeling abnormal [Unknown]
  - Photopsia [Unknown]
  - Dysphonia [Unknown]

NARRATIVE: CASE EVENT DATE: 20161006
